FAERS Safety Report 7044168-X (Version None)
Quarter: 2010Q4

REPORT INFORMATION
  Report Type: 
  Country: None (occurrence: None)
  Receive Date: 20101013
  Receipt Date: 20101004
  Transmission Date: 20110411
  Serious: No
  Sender: FDA-Public Use
  Company Number: US-PFIZER INC-2010126189

PATIENT
  Sex: Male
  Weight: 102.4 kg

DRUGS (1)
  1. VIAGRA [Suspect]
     Indication: ERECTILE DYSFUNCTION
     Dosage: 100 MG, AS NEEDED
     Route: 048
     Dates: start: 20020101

REACTIONS (4)
  - DRUG INEFFECTIVE [None]
  - FLUSHING [None]
  - HOT FLUSH [None]
  - OCULAR HYPERAEMIA [None]
